FAERS Safety Report 12082738 (Version 1)
Quarter: 2016Q1

REPORT INFORMATION
  Report Type: Other
  Country: FR (occurrence: FR)
  Receive Date: 20160217
  Receipt Date: 20160217
  Transmission Date: 20160526
  Serious: Yes (Hospitalization)
  Sender: FDA-Public Use
  Company Number: FR-LUPIN PHARMACEUTICALS INC.-2016-00654

PATIENT
  Age: 26 Year
  Sex: Male

DRUGS (4)
  1. LAMOTRIGINE TABLETS 200MG (LAMOTRIGINE) TABLE T [Suspect]
     Active Substance: LAMOTRIGINE
     Route: 048
  2. LACOSAMIDE [Suspect]
     Active Substance: LACOSAMIDE
     Route: 048
  3. LAMOTRIGINE TABLETS 200MG (LAMOTRIGINE) TABLE T [Suspect]
     Active Substance: LAMOTRIGINE
     Indication: PRODUCT USED FOR UNKNOWN INDICATION
     Route: 048
  4. LACOSAMIDE [Suspect]
     Active Substance: LACOSAMIDE
     Indication: PRODUCT USED FOR UNKNOWN INDICATION
     Route: 048

REACTIONS (4)
  - Status epilepticus [Recovered/Resolved]
  - Agitation [None]
  - Suicide attempt [None]
  - Poisoning deliberate [Unknown]
